FAERS Safety Report 6958419-0 (Version None)
Quarter: 2010Q3

REPORT INFORMATION
  Report Type: 
  Country: None (occurrence: None)
  Receive Date: 20100817
  Receipt Date: 20090906
  Transmission Date: 20110219
  Serious: Yes (Hospitalization)
  Sender: FDA-Public Use
  Company Number: 20097389

PATIENT
  Sex: Female

DRUGS (1)
  1. LIORESAL [Suspect]
     Indication: MUSCLE SPASTICITY
     Dosage: 240 - 100 MCG, DAILY, INTRATHECAL
     Route: 037

REACTIONS (2)
  - ALTERED STATE OF CONSCIOUSNESS [None]
  - OVERDOSE [None]
